FAERS Safety Report 13129095 (Version 1)
Quarter: 2017Q1

REPORT INFORMATION
  Report Type: Spontaneous
  Country: US (occurrence: US)
  Receive Date: 20170119
  Receipt Date: 20170119
  Transmission Date: 20170428
  Serious: No
  Sender: FDA-Public Use
  Company Number: US-TEVA-727978ACC

PATIENT
  Age: 35 Year
  Sex: Female

DRUGS (3)
  1. NORINYL (MESTRANOL\NORETHINDRONE) [Concomitant]
     Active Substance: MESTRANOL\NORETHINDRONE
  2. GABAPENTIN. [Concomitant]
     Active Substance: GABAPENTIN
  3. COPAXONE [Suspect]
     Active Substance: GLATIRAMER ACETATE
     Indication: MULTIPLE SCLEROSIS
     Route: 058
     Dates: start: 20160602

REACTIONS (1)
  - Injection site pruritus [Unknown]

NARRATIVE: CASE EVENT DATE: 201610
